FAERS Safety Report 11671479 (Version 1)
Quarter: 2015Q4

REPORT INFORMATION
  Report Type: Spontaneous
  Country: US (occurrence: US)
  Receive Date: 20151027
  Receipt Date: 20151027
  Transmission Date: 20160304
  Serious: No
  Sender: FDA-Public Use
  Company Number: US-ELI_LILLY_AND_COMPANY-US201006001851

PATIENT
  Age: 83 Year
  Sex: Female
  Weight: 45.35 kg

DRUGS (4)
  1. FORTEO [Suspect]
     Active Substance: TERIPARATIDE
     Indication: OSTEOPOROSIS
     Dosage: 20 UG, DAILY (1/D)
     Dates: start: 2010
  2. CALCIUM [Concomitant]
     Active Substance: CALCIUM
     Dosage: 2000 G, UNKNOWN
  3. LAXATIVES [Concomitant]
     Active Substance: UNSPECIFIED INGREDIENT
     Indication: CONSTIPATION
     Dosage: UNK, UNKNOWN
     Dates: start: 2010
  4. FORTEO [Suspect]
     Active Substance: TERIPARATIDE
     Dosage: 20 UG, DAILY (1/D)
     Dates: start: 2010

REACTIONS (8)
  - Painful defaecation [Unknown]
  - Constipation [Recovering/Resolving]
  - Drug dose omission [Unknown]
  - Abdominal distension [Recovering/Resolving]
  - Accidental overdose [Unknown]
  - Weight decreased [Recovering/Resolving]
  - Electric shock [Unknown]
  - Malaise [Unknown]

NARRATIVE: CASE EVENT DATE: 2010
